FAERS Safety Report 13655897 (Version 1)
Quarter: 2017Q2

REPORT INFORMATION
  Report Type: Spontaneous
  Country: CN (occurrence: CN)
  Receive Date: 20170615
  Receipt Date: 20170615
  Transmission Date: 20170830
  Serious: Yes (Hospitalization, Other)
  Sender: FDA-Public Use
  Company Number: CN-MYLANLABS-2017M1035139

PATIENT

DRUGS (9)
  1. NATAMYCIN [Suspect]
     Active Substance: NATAMYCIN
     Dosage: 5%, FOUR TIMES A DAY
     Route: 061
  2. INTERFERON [Concomitant]
     Active Substance: INTERFERON
     Indication: KERATITIS VIRAL
     Route: 061
  3. PRANOPROFEN [Suspect]
     Active Substance: PRANOPROFEN
     Indication: KERATITIS
     Dosage: FOUR TIMES A DAY FOR FUNGAL AND VIRAL KERATITIS
     Route: 061
  4. LEVOFLOXACIN. [Suspect]
     Active Substance: LEVOFLOXACIN
     Indication: ANTIBIOTIC THERAPY
     Route: 061
  5. GANCICLOVIR. [Suspect]
     Active Substance: GANCICLOVIR
     Indication: KERATITIS
     Dosage: APPLIED THREE TIMES A DAY FOR FUNGAL AND VIRAL KERATITIS
     Route: 061
  6. TROPICAMIDE. [Suspect]
     Active Substance: TROPICAMIDE
     Indication: KERATITIS
     Dosage: ADMINISTERED THRICE A DAY
     Route: 061
  7. FAMCICLOVIR. [Concomitant]
     Active Substance: FAMCICLOVIR
     Indication: KERATITIS VIRAL
     Route: 048
  8. NATAMYCIN [Suspect]
     Active Substance: NATAMYCIN
     Indication: KERATITIS
     Dosage: 5%, FOUR TIMES EVERY HOUR, LATER DOSE WAS REDUCED
     Route: 061
  9. ACICLOVIR [Concomitant]
     Active Substance: ACYCLOVIR
     Indication: KERATITIS
     Route: 048

REACTIONS (4)
  - Conjunctival disorder [Recovering/Resolving]
  - Dysbacteriosis [Recovering/Resolving]
  - Ocular surface disease [Recovering/Resolving]
  - Keratitis fungal [Recovering/Resolving]
